FAERS Safety Report 5978025-4 (Version None)
Quarter: 2008Q4

REPORT INFORMATION
  Report Type: 
  Country: None (occurrence: None)
  Receive Date: 20081125
  Receipt Date: 20081113
  Transmission Date: 20090506
  Serious: No
  Sender: FDA-Public Use
  Company Number: 2008-186864-NL

PATIENT
  Age: 66 Year
  Sex: Female

DRUGS (5)
  1. MIRTAZAPINE [Suspect]
     Dosage: 45 MG
     Dates: start: 20070824
  2. CARBAMAZEPINE [Concomitant]
  3. QUETIAPINE FUMARATE [Concomitant]
  4. LITHIUM [Concomitant]
  5. OLANZAPINE [Concomitant]

REACTIONS (3)
  - DYSURIA [None]
  - POLLAKIURIA [None]
  - SUPRAPUBIC PAIN [None]
